FAERS Safety Report 11505777 (Version 1)
Quarter: 2015Q3

REPORT INFORMATION
  Report Type: Spontaneous
  Country: US (occurrence: US)
  Receive Date: 20150915
  Receipt Date: 20150915
  Transmission Date: 20151125
  Serious: No
  Sender: FDA-Public Use
  Company Number: US-ROCHE-750397

PATIENT
  Age: 58 Year
  Sex: Male
  Weight: 85.7 kg

DRUGS (8)
  1. RIBAVIRIN. [Suspect]
     Active Substance: RIBAVIRIN
     Indication: CHRONIC HEPATITIS C
     Dosage: DIVIDED DOSES
     Route: 065
     Dates: start: 20101124, end: 20101215
  2. RIBAVIRIN. [Suspect]
     Active Substance: RIBAVIRIN
     Route: 065
  3. MS CONTIN [Concomitant]
     Active Substance: MORPHINE SULFATE
     Indication: PAIN
     Route: 048
  4. PEGASYS [Suspect]
     Active Substance: PEGINTERFERON ALFA-2A
     Indication: CHRONIC HEPATITIS C
     Dosage: FORM: PRE-FILLED SYRINGE
     Route: 058
  5. CYMBALTA [Concomitant]
     Active Substance: DULOXETINE HYDROCHLORIDE
     Indication: DEPRESSION
     Route: 048
  6. PEGASYS [Suspect]
     Active Substance: PEGINTERFERON ALFA-2A
     Route: 058
  7. LEVOTHYROXINE. [Concomitant]
     Active Substance: LEVOTHYROXINE
     Indication: HYPOTHYROIDISM
     Route: 048
  8. PEGASYS [Suspect]
     Active Substance: PEGINTERFERON ALFA-2A
     Dosage: DOSAGE LOWERED
     Route: 058

REACTIONS (9)
  - Insomnia [Recovering/Resolving]
  - Dehydration [Recovering/Resolving]
  - Hyperhidrosis [Recovering/Resolving]
  - Pyrexia [Recovering/Resolving]
  - Decreased appetite [Recovering/Resolving]
  - Feeling abnormal [Recovering/Resolving]
  - Influenza like illness [Recovering/Resolving]
  - Blood potassium decreased [Recovering/Resolving]
  - Bone pain [Recovering/Resolving]

NARRATIVE: CASE EVENT DATE: 20101125
